FAERS Safety Report 10043912 (Version 1)
Quarter: 2014Q1

REPORT INFORMATION
  Report Type: Spontaneous
  Country: US (occurrence: US)
  Receive Date: 20140328
  Receipt Date: 20140328
  Transmission Date: 20141002
  Serious: No
  Sender: FDA-Public Use
  Company Number: US-MYLANLABS-2013S1002989

PATIENT
  Age: 52 Year
  Sex: Female

DRUGS (1)
  1. EMSAM (SELEGILINE TRANSDERMAL SYSTEM) [Suspect]
     Dosage: CHANGED Q24H
     Route: 062

REACTIONS (1)
  - Weight increased [Not Recovered/Not Resolved]
